FAERS Safety Report 17116408 (Version 1)
Quarter: 2019Q4

REPORT INFORMATION
  Report Type: Spontaneous
  Country: US (occurrence: US)
  Receive Date: 20191204
  Receipt Date: 20191204
  Transmission Date: 20200122
  Serious: No
  Sender: FDA-Public Use
  Company Number: None

PATIENT
  Age: 41 Year
  Sex: Female
  Weight: 136 kg

DRUGS (6)
  1. INSULIN [Concomitant]
     Active Substance: INSULIN NOS
  2. CINNAMON SUPPLEMENT [Concomitant]
  3. MIRENA [Suspect]
     Active Substance: LEVONORGESTREL
     Dates: start: 20181015, end: 20190401
  4. TISSUE SALT/SILICA [Concomitant]
  5. EUROSTIQ [Concomitant]
  6. JANUMET [Concomitant]
     Active Substance: METFORMIN HYDROCHLORIDE\SITAGLIPTIN PHOSPHATE

REACTIONS (8)
  - Anger [None]
  - Anxiety [None]
  - Device dislocation [None]
  - Blood glucose increased [None]
  - Alopecia [None]
  - Fungal infection [None]
  - Vaginal discharge [None]
  - Panic attack [None]

NARRATIVE: CASE EVENT DATE: 20181015
